FAERS Safety Report 25431896 (Version 1)
Quarter: 2025Q2

REPORT INFORMATION
  Report Type: Spontaneous
  Country: A1 (occurrence: A1)
  Receive Date: 20250613
  Receipt Date: 20250613
  Transmission Date: 20250717
  Serious: No
  Sender: ARMSTRONG PHARMACEUTICALS, INC.
  Company Number: A1-Armstrong Pharmaceuticals, Inc.-2178628

PATIENT

DRUGS (1)
  1. PRIMATENE MIST [Suspect]
     Active Substance: EPINEPHRINE

REACTIONS (1)
  - Drug ineffective [Unknown]
